FAERS Safety Report 5611178-6 (Version None)
Quarter: 2008Q1

REPORT INFORMATION
  Report Type: 
  Country: None (occurrence: None)
  Receive Date: 20080129
  Receipt Date: 20080115
  Transmission Date: 20080703
  Serious: Yes (Hospitalization)
  Sender: FDA-Public Use
  Company Number: 2008US000239

PATIENT
  Age: 60 Year
  Sex: Female

DRUGS (6)
  1. PROGRAF [Suspect]
     Indication: HEART TRANSPLANT
     Dosage: 1 MG, BID; ORAL
     Route: 048
     Dates: start: 20071014, end: 20071019
  2. MYCOPHENOLATE MOFETIL [Suspect]
     Indication: HEART TRANSPLANT
     Dates: start: 20070925, end: 20070925
  3. SIROLIUMS(SIROLIMUS) [Suspect]
     Indication: HEART TRANSPLANT
     Dosage: 3 MG, UID/QD;ORAL
     Route: 048
     Dates: start: 20071016, end: 20071019
  4. DILANTIN [Suspect]
     Indication: DRUG USE FOR UNKNOWN INDICATION
  5. DAPSONE [Suspect]
     Indication: DRUG USE FOR UNKNOWN INDICATION
  6. HEPARIN [Suspect]
     Indication: DRUG USE FOR UNKNOWN INDICATION

REACTIONS (7)
  - CEREBRAL ARTERY EMBOLISM [None]
  - CEREBRAL ISCHAEMIA [None]
  - GRAND MAL CONVULSION [None]
  - HAEMOLYTIC ANAEMIA [None]
  - HAEMORRHAGIC STROKE [None]
  - HEPARIN-INDUCED THROMBOCYTOPENIA [None]
  - REVERSIBLE POSTERIOR LEUKOENCEPHALOPATHY SYNDROME [None]
